FAERS Safety Report 8465828 (Version 2)
Quarter: 2013Q4

REPORT INFORMATION
  Report Type: Spontaneous
  Country: MX (occurrence: MX)
  Receive Date: 20120319
  Receipt Date: 20131009
  Transmission Date: 20140711
  Serious: Yes (Other)
  Sender: FDA-Public Use
  Company Number: PHHY2012MX022704

PATIENT
  Sex: Male
  Weight: 1.8 kg

DRUGS (5)
  1. TEGRETOL [Suspect]
     Dosage: MATERNAL DOSE: 200 MG, BID
     Route: 064
  2. TRILEPTAL [Suspect]
     Dosage: MATERNAL DOSE- 200 MG BID
     Route: 064
  3. FOLIC ACID [Concomitant]
     Indication: VITAMIN SUPPLEMENTATION
     Dosage: UNK UKN, UNK
     Route: 064
  4. ASPIRIN [Concomitant]
     Dosage: MATERNAL DOSE- 1 DF, DAILY
     Route: 064
  5. MULTI-VIT [Concomitant]
     Dosage: MATERNAL DOSE- 1 DF, DAILY
     Route: 064

REACTIONS (4)
  - Premature baby [Unknown]
  - Neonatal asphyxia [Unknown]
  - Low birth weight baby [Unknown]
  - Foetal exposure during pregnancy [Unknown]
